FAERS Safety Report 7898706-5 (Version None)
Quarter: 2011Q4

REPORT INFORMATION
  Report Type: 
  Country: None (occurrence: None)
  Receive Date: 20111103
  Receipt Date: 20111031
  Transmission Date: 20120403
  Serious: Yes (Other)
  Sender: FDA-Public Use
  Company Number: PD 152

PATIENT
  Age: 30 Year
  Sex: Female

DRUGS (1)
  1. CETIRIZINE [Suspect]
     Indication: HYPERSENSITIVITY
     Dosage: 10 MG/DAY

REACTIONS (5)
  - DYSPHAGIA [None]
  - DIPLOPIA [None]
  - DYSPHONIA [None]
  - FACIAL PARESIS [None]
  - JAW DISORDER [None]
